FAERS Safety Report 11507050 (Version 1)
Quarter: 2015Q3

REPORT INFORMATION
  Report Type: Report from Study
  Country: US (occurrence: US)
  Receive Date: 20150915
  Receipt Date: 20150915
  Transmission Date: 20151125
  Serious: Yes (Hospitalization)
  Sender: FDA-Public Use
  Company Number: US-BIOGENIDEC-2015BI124568

PATIENT
  Sex: Female

DRUGS (11)
  1. TECFIDERA [Suspect]
     Active Substance: DIMETHYL FUMARATE
     Indication: MULTIPLE SCLEROSIS
     Route: 048
  2. NEXIUM [Concomitant]
     Active Substance: ESOMEPRAZOLE MAGNESIUM
  3. DIAZEPAM. [Concomitant]
     Active Substance: DIAZEPAM
  4. VITAMIN D2 [Concomitant]
     Active Substance: ERGOCALCIFEROL
  5. DULOXETINE. [Concomitant]
     Active Substance: DULOXETINE
  6. ZORVOLEX [Concomitant]
     Active Substance: DICLOFENAC
  7. GABAPENTIN. [Concomitant]
     Active Substance: GABAPENTIN
  8. TRAMADOL. [Concomitant]
     Active Substance: TRAMADOL
  9. ADDERALL [Concomitant]
     Active Substance: AMPHETAMINE ASPARTATE\AMPHETAMINE SULFATE\DEXTROAMPHETAMINE SACCHARATE\DEXTROAMPHETAMINE SULFATE
  10. ESTRADIOL. [Concomitant]
     Active Substance: ESTRADIOL
  11. TOLTERODINE TARTRATE. [Concomitant]
     Active Substance: TOLTERODINE TARTRATE

REACTIONS (1)
  - Atypical pneumonia [Unknown]
